FAERS Safety Report 6896652-7 (Version None)
Quarter: 2010Q3

REPORT INFORMATION
  Report Type: 
  Country: None (occurrence: None)
  Receive Date: 20100802
  Receipt Date: 20070111
  Transmission Date: 20110219
  Serious: No
  Sender: FDA-Public Use
  Company Number: US-PFIZER INC-2006147392

PATIENT
  Age: 52 Year
  Sex: Male
  Weight: 81.65 kg

DRUGS (6)
  1. PREGABALIN [Suspect]
     Indication: BACK PAIN
     Dates: start: 20061108, end: 20061120
  2. ALTACE [Concomitant]
  3. ATENOLOL [Concomitant]
  4. CELEBREX [Concomitant]
  5. SKELAXIN [Concomitant]
  6. NORCO [Concomitant]

REACTIONS (2)
  - ANORGASMIA [None]
  - LIBIDO DECREASED [None]
